FAERS Safety Report 7811312-3 (Version None)
Quarter: 2011Q4

REPORT INFORMATION
  Report Type: 
  Country: None (occurrence: None)
  Receive Date: 20111012
  Receipt Date: 20111012
  Transmission Date: 20120403
  Serious: Yes (Hospitalization)
  Sender: FDA-Public Use
  Company Number: None

PATIENT
  Sex: Female
  Weight: 70.7611 kg

DRUGS (1)
  1. PRADAXA [Suspect]
     Indication: ATRIAL FIBRILLATION
     Dosage: 150 MG 2 TIMES AM + PM
     Dates: start: 20110118, end: 20110805

REACTIONS (4)
  - DIZZINESS [None]
  - RASH GENERALISED [None]
  - ACTIVITIES OF DAILY LIVING IMPAIRED [None]
  - ATRIAL FIBRILLATION [None]
